FAERS Safety Report 5202337-5 (Version None)
Quarter: 2006Q4

REPORT INFORMATION
  Report Type: 
  Country: None (occurrence: None)
  Receive Date: 20061012
  Receipt Date: 20051129
  Transmission Date: 20070319
  Serious: Yes (Other)
  Sender: FDA-Public Use
  Company Number: US-JNJFOC-20051106540

PATIENT
  Age: 79 Year
  Weight: 68.9467 kg

DRUGS (11)
  1. NESIRITIDE (NESIRITIDE) INJECTION [Suspect]
     Indication: CARDIAC FAILURE CONGESTIVE
     Dosage: 0.01 MG/KG, 1 IN 1 MINUTE, INTRAVENOUS
     Route: 042
     Dates: start: 20040204, end: 20040205
  2. AZULFADINE (SULFASALAZINE) [Concomitant]
  3. COREG [Concomitant]
  4. DARVOCET-N 100 [Concomitant]
  5. IMDUR [Concomitant]
  6. LABETALOL HCL (LABETALOL HYDROCHLORIDE) [Concomitant]
  7. LASIX [Concomitant]
  8. LIPITOR [Concomitant]
  9. LOVENOX [Concomitant]
  10. MIACALCIN [Concomitant]
  11. TRICOR [Concomitant]

REACTIONS (2)
  - HYPOTENSION [None]
  - INFUSION RELATED REACTION [None]
